FAERS Safety Report 7520527-3 (Version None)
Quarter: 2011Q2

REPORT INFORMATION
  Report Type: 
  Country: None (occurrence: None)
  Receive Date: 20110602
  Receipt Date: 20110519
  Transmission Date: 20111010
  Serious: Yes (Hospitalization, Other)
  Sender: FDA-Public Use
  Company Number: US-ELI_LILLY_AND_COMPANY-US201105006324

PATIENT
  Sex: Female

DRUGS (3)
  1. REBIF [Concomitant]
     Dosage: 44 UG, 3/W
     Route: 058
     Dates: start: 20070831
  2. CYMBALTA [Suspect]
     Dosage: UNK
     Dates: start: 20110402, end: 20110423
  3. ANTIDEPRESSANTS [Concomitant]

REACTIONS (2)
  - HOMICIDAL IDEATION [None]
  - ANGER [None]
